FAERS Safety Report 11068719 (Version 1)
Quarter: 2015Q2

REPORT INFORMATION
  Report Type: Spontaneous
  Country: US (occurrence: None)
  Receive Date: 20150424
  Receipt Date: 20150424
  Transmission Date: 20150821
  Serious: Yes (Life-Threatening, Other)
  Sender: FDA-Public Use
  Company Number: None

PATIENT
  Age: 34 Year
  Sex: Female
  Weight: 47.63 kg

DRUGS (6)
  1. SEROQUEL [Suspect]
     Active Substance: QUETIAPINE FUMARATE
     Indication: PRODUCT USED FOR UNKNOWN INDICATION
     Dosage: 1 PILL
     Route: 048
     Dates: start: 20150414, end: 20150420
  2. ADDERRALL [Concomitant]
  3. GUMMY B-12 [Concomitant]
  4. XANAX [Concomitant]
     Active Substance: ALPRAZOLAM
  5. GUMMY MULTI-VITAMINS [Concomitant]
  6. GUMMY VITAMIN C [Concomitant]

REACTIONS (18)
  - Incoherent [None]
  - Muscle twitching [None]
  - Speech disorder [None]
  - Muscle disorder [None]
  - Nausea [None]
  - Fatigue [None]
  - Seizure [None]
  - Hallucination, visual [None]
  - Myalgia [None]
  - Drooling [None]
  - Feeding disorder [None]
  - Therapy cessation [None]
  - Eye pain [None]
  - Feeling cold [None]
  - Asthenia [None]
  - Hyperhidrosis [None]
  - Night sweats [None]
  - Oropharyngeal pain [None]

NARRATIVE: CASE EVENT DATE: 20150420
